FAERS Safety Report 9167049 (Version 2)
Quarter: 2013Q2

REPORT INFORMATION
  Report Type: Spontaneous
  Country: US (occurrence: US)
  Receive Date: 20130318
  Receipt Date: 20130518
  Transmission Date: 20140414
  Serious: No
  Sender: FDA-Public Use
  Company Number: US-009507513-1303USA005315

PATIENT
  Age: 73 Year
  Sex: Male

DRUGS (4)
  1. VYTORIN [Suspect]
     Indication: BLOOD CHOLESTEROL INCREASED
     Dosage: 10 MG/20 MG ONCE DAILY
     Route: 048
     Dates: start: 200903, end: 2013
  2. LISINOPRIL [Concomitant]
     Route: 048
  3. CO-GESIC (ACETAMINOPHEN (+) CODEINE PHOSPHATE) [Concomitant]
  4. NEXIUM [Concomitant]
     Route: 048

REACTIONS (3)
  - Visual impairment [Recovered/Resolved]
  - Mobility decreased [Recovered/Resolved]
  - Myalgia [Recovered/Resolved]
